FAERS Safety Report 7360216-1 (Version None)
Quarter: 2011Q1

REPORT INFORMATION
  Report Type: 
  Country: None (occurrence: None)
  Receive Date: 20110307
  Receipt Date: 20110224
  Transmission Date: 20110831
  Serious: Yes (Disabling, Other)
  Sender: FDA-Public Use
  Company Number: GER/UKI/10/0015908

PATIENT
  Age: 58 Year
  Sex: Female
  Weight: 79 kg

DRUGS (2)
  1. ESCITALOPRAM [Concomitant]
  2. CIPROFLOXACIN [Suspect]
     Indication: LOWER RESPIRATORY TRACT INFECTION
     Dosage: 500 MG, 3 IN 1 D, ORAL
     Route: 048
     Dates: start: 20090415, end: 20090424

REACTIONS (1)
  - EOSINOPHILIC FASCIITIS [None]
